FAERS Safety Report 6062343-8 (Version None)
Quarter: 2009Q1

REPORT INFORMATION
  Report Type: 
  Country: None (occurrence: None)
  Receive Date: 20090203
  Receipt Date: 20081212
  Transmission Date: 20090719
  Serious: No
  Sender: FDA-Public Use
  Company Number: US-BAYER-200840793NA

PATIENT
  Sex: Female
  Weight: 68 kg

DRUGS (1)
  1. ULTRAVIST 300 [Suspect]
     Indication: COMPUTERISED TOMOGRAM THORAX
     Dosage: TOTAL DAILY DOSE: 90 ML  UNIT DOSE: 150 ML

REACTIONS (3)
  - HYPOAESTHESIA [None]
  - PAIN [None]
  - URTICARIA [None]
